FAERS Safety Report 18528700 (Version 11)
Quarter: 2024Q4

REPORT INFORMATION
  Report Type: Report from Study
  Country: CO (occurrence: CO)
  Receive Date: 20201120
  Receipt Date: 20241129
  Transmission Date: 20250115
  Serious: Yes (Other)
  Sender: TAKEDA
  Company Number: CO-TAKEDA-2019TUS028136

PATIENT
  Age: 33 Year
  Sex: Female
  Weight: 79.6 kg

DRUGS (5)
  1. VEDOLIZUMAB [Suspect]
     Active Substance: VEDOLIZUMAB
     Indication: Crohn^s disease
     Dosage: 300 MILLIGRAM
  2. PREDNISONE [Concomitant]
     Active Substance: PREDNISONE
     Dosage: UNK
  3. AZATHIOPRINE [Concomitant]
     Active Substance: AZATHIOPRINE
     Dosage: UNK
  4. MESALAMINE [Concomitant]
     Active Substance: MESALAMINE
     Dosage: UNK
  5. FOLIC ACID [Concomitant]
     Active Substance: FOLIC ACID
     Dosage: UNK

REACTIONS (19)
  - Diarrhoea haemorrhagic [Not Recovered/Not Resolved]
  - Haematochezia [Not Recovered/Not Resolved]
  - Large intestinal stenosis [Not Recovered/Not Resolved]
  - Skin hyperpigmentation [Not Recovered/Not Resolved]
  - Haemoglobin decreased [Not Recovered/Not Resolved]
  - Abdominal pain [Not Recovered/Not Resolved]
  - Hypersensitivity [Unknown]
  - Herpes zoster [Recovered/Resolved]
  - Constipation [Not Recovered/Not Resolved]
  - Influenza [Recovered/Resolved]
  - Skin lesion [Not Recovered/Not Resolved]
  - Conjunctivitis [Unknown]
  - Blood urine present [Unknown]
  - Weight fluctuation [Unknown]
  - Peripheral coldness [Recovered/Resolved]
  - Oropharyngeal discomfort [Recovered/Resolved]
  - Discomfort [Recovered/Resolved]
  - Abdominal distension [Not Recovered/Not Resolved]
  - Cough [Recovered/Resolved]

NARRATIVE: CASE EVENT DATE: 20190421
